FAERS Safety Report 7584217-3 (Version None)
Quarter: 2011Q2

REPORT INFORMATION
  Report Type: 
  Country: None (occurrence: None)
  Receive Date: 20110630
  Receipt Date: 20101020
  Transmission Date: 20111010
  Serious: No
  Sender: FDA-Public Use
  Company Number: US-ABBOTT-10P-163-0680158-00

PATIENT
  Sex: Female

DRUGS (4)
  1. TRUVADA [Suspect]
     Indication: HIV TEST POSITIVE
     Dates: start: 20101001
  2. PREZISTA [Suspect]
     Indication: HIV TEST POSITIVE
     Dates: start: 20101001
  3. MEPRON [Concomitant]
     Indication: ANTIFUNGAL PROPHYLAXIS
     Dates: start: 20100401
  4. NORVIR [Suspect]
     Indication: HIV TEST POSITIVE
     Dates: start: 20101001

REACTIONS (4)
  - CHEST DISCOMFORT [None]
  - TONGUE DISCOLOURATION [None]
  - SKIN DISCOLOURATION [None]
  - URTICARIA [None]
